FAERS Safety Report 8072498-1 (Version None)
Quarter: 2011Q4

REPORT INFORMATION
  Report Type: 
  Country: None (occurrence: None)
  Receive Date: 20111221
  Receipt Date: 20110919
  Transmission Date: 20120403
  Serious: Yes (Hospitalization)
  Sender: FDA-Public Use
  Company Number: PHEH2011US04558

PATIENT
  Sex: Female
  Weight: 39.9 kg

DRUGS (2)
  1. DESFERAL [Suspect]
     Dosage: INTRAVENOUS
     Route: 042
     Dates: start: 20070522
  2. EXJADE [Suspect]
     Dosage: 750 MG, QD, ORAL
     Route: 048
     Dates: start: 20070522

REACTIONS (1)
  - SERUM FERRITIN INCREASED [None]
